FAERS Safety Report 11439252 (Version 1)
Quarter: 2015Q3

REPORT INFORMATION
  Report Type: Spontaneous
  Country: US (occurrence: None)
  Receive Date: 20150831
  Receipt Date: 20150831
  Transmission Date: 20151125
  Serious: No
  Sender: FDA-Public Use
  Company Number: None

PATIENT
  Age: 67 Year
  Sex: Female

DRUGS (11)
  1. SOVALDI [Suspect]
     Active Substance: SOFOSBUVIR
     Indication: HEPATITIS
     Route: 048
     Dates: start: 20150729, end: 20150826
  2. LEVOXYL [Concomitant]
     Active Substance: LEVOTHYROXINE SODIUM
  3. MIRTAZAPINE. [Concomitant]
     Active Substance: MIRTAZAPINE
  4. MELATONIN [Suspect]
     Active Substance: MELATONIN
  5. RESTASIS [Concomitant]
     Active Substance: CYCLOSPORINE
  6. VALACYCLOVIR [Concomitant]
     Active Substance: VALACYCLOVIR HYDROCHLORIDE
  7. LOSARTAN POT [Concomitant]
  8. FLUTICASONE SPR [Concomitant]
  9. CARTIA XT [Concomitant]
     Active Substance: DILTIAZEM HYDROCHLORIDE
  10. LORAZEPAM. [Concomitant]
     Active Substance: LORAZEPAM
  11. RIBAVIRIN 200MG ZYDUS [Suspect]
     Active Substance: RIBAVIRIN
     Indication: HEPATITIS
     Route: 048
     Dates: start: 20150729, end: 20150826

REACTIONS (3)
  - Respiratory tract congestion [None]
  - Muscular weakness [None]
  - Dyspnoea [None]

NARRATIVE: CASE EVENT DATE: 20150826
